FAERS Safety Report 7327695-7 (Version None)
Quarter: 2011Q1

REPORT INFORMATION
  Report Type: 
  Country: None (occurrence: None)
  Receive Date: 20110303
  Receipt Date: 20100928
  Transmission Date: 20110831
  Serious: Yes (Hospitalization, Other)
  Sender: FDA-Public Use
  Company Number: US-BAYER-201019499NA

PATIENT
  Sex: Female
  Weight: 58.957 kg

DRUGS (13)
  1. UNCODEABLE ^UNKNOWN MANUFACTURER^ [Concomitant]
     Dosage: UNK
     Dates: start: 20070101, end: 20090501
  2. EFFEXOR XR [Concomitant]
     Indication: DEPRESSION
     Dosage: UNK
     Dates: start: 20071101, end: 20080401
  3. CITALOPRAM [Concomitant]
     Indication: MIGRAINE
     Dosage: UNK
     Dates: start: 20070301, end: 20070901
  4. ISOMETHEPTENE/DICHLORALPHENAZONE/APAP [Concomitant]
     Dosage: UNK
     Dates: start: 20070101, end: 20090501
  5. IMITREX [Concomitant]
     Dosage: UNK
     Dates: start: 20070101, end: 20090501
  6. BUTASONE [Concomitant]
     Dosage: UNK
     Dates: start: 20070101, end: 20090101
  7. TOPAMAX [Concomitant]
     Dosage: UNK
     Dates: start: 20070701, end: 20090401
  8. PROZAC [Concomitant]
  9. MAXALT [Concomitant]
     Indication: MIGRAINE
     Dosage: UNK
     Dates: start: 20070901, end: 20090501
  10. INDERAL [Concomitant]
     Dosage: UNK
     Dates: start: 20070101, end: 20090501
  11. AMIDRINE [Concomitant]
     Dosage: UNK
     Dates: start: 20070101, end: 20090501
  12. YASMIN [Suspect]
     Indication: PRODUCT USED FOR UNKNOWN INDICATION
     Dosage: UNK
     Route: 048
     Dates: start: 20060709, end: 20080424
  13. HYDROCODONE BITARTRATE AND ACETAMINOPHEN [Concomitant]
     Indication: DEPRESSION
     Dosage: UNK
     Dates: start: 20070101, end: 20090501

REACTIONS (4)
  - PULMONARY EMBOLISM [None]
  - CHEST DISCOMFORT [None]
  - DYSPNOEA [None]
  - PLEURITIC PAIN [None]
